FAERS Safety Report 13166650 (Version 1)
Quarter: 2017Q1

REPORT INFORMATION
  Report Type: Spontaneous
  Country: US (occurrence: US)
  Receive Date: 20170126
  Receipt Date: 20170126
  Transmission Date: 20170428
  Serious: Yes (Other)
  Sender: FDA-Public Use
  Company Number: None

PATIENT
  Age: 45 Year
  Sex: Female

DRUGS (1)
  1. IMATINIB MESYLATE. [Suspect]
     Active Substance: IMATINIB MESYLATE
     Indication: NEOPLASM MALIGNANT
     Route: 048
     Dates: start: 20160629, end: 20170124

REACTIONS (4)
  - Gait disturbance [None]
  - Product substitution issue [None]
  - Tendon disorder [None]
  - Grip strength decreased [None]

NARRATIVE: CASE EVENT DATE: 20160709
